FAERS Safety Report 5838471-6 (Version None)
Quarter: 2008Q3

REPORT INFORMATION
  Report Type: 
  Country: None (occurrence: None)
  Receive Date: 20080806
  Receipt Date: 20080728
  Transmission Date: 20090109
  Serious: Yes (Hospitalization, Other)
  Sender: FDA-Public Use
  Company Number: 163-21880-08071656

PATIENT
  Age: 58 Year
  Sex: Male
  Weight: 41.2773 kg

DRUGS (1)
  1. REVLIMID [Suspect]
     Indication: MULTIPLE MYELOMA
     Dosage: 5 MG, DAILY WITH WATER FOR 21 DAYS, Q 28 DAYS, ORAL
     Route: 048
     Dates: start: 20080410

REACTIONS (2)
  - KIDNEY TRANSPLANT REJECTION [None]
  - MUSCULAR WEAKNESS [None]
